FAERS Safety Report 5698711-3 (Version None)
Quarter: 2008Q2

REPORT INFORMATION
  Report Type: 
  Country: None (occurrence: None)
  Receive Date: 20080408
  Receipt Date: 20070327
  Transmission Date: 20081010
  Serious: No
  Sender: FDA-Public Use
  Company Number: US-BAYER-US-2007-010814

PATIENT
  Age: 44 Year
  Sex: Female
  Weight: 66 kg

DRUGS (2)
  1. CLIMARA [Suspect]
     Route: 062
     Dates: start: 19950101
  2. NALTREXONE HYDROCHLORIDE [Concomitant]
     Indication: MULTIPLE SCLEROSIS
     Route: 048
     Dates: start: 20050101

REACTIONS (1)
  - BREAST TENDERNESS [None]
